FAERS Safety Report 20663308 (Version 3)
Quarter: 2022Q3

REPORT INFORMATION
  Report Type: Report from Study
  Country: MX (occurrence: MX)
  Receive Date: 20220401
  Receipt Date: 20220708
  Transmission Date: 20221026
  Serious: Yes (Hospitalization, Other)
  Sender: FDA-Public Use
  Company Number: MX-BAYER-2022A038205

PATIENT
  Age: 41 Year
  Sex: Male

DRUGS (3)
  1. STIVARGA [Suspect]
     Active Substance: REGORAFENIB
     Indication: Colorectal cancer
     Dosage: 80 MG, QD
     Dates: start: 20211115, end: 20220126
  2. STIVARGA [Suspect]
     Active Substance: REGORAFENIB
     Indication: Metastases to stomach
     Dosage: UNK
     Dates: start: 20220307, end: 20220322
  3. STIVARGA [Suspect]
     Active Substance: REGORAFENIB
     Indication: Colorectal cancer
     Dosage: UNK
     Dates: end: 20220627

REACTIONS (7)
  - Purulent discharge [Recovered/Resolved]
  - Vomiting [None]
  - Gastrointestinal candidiasis [None]
  - Periumbilical abscess [Not Recovered/Not Resolved]
  - Purulent discharge [None]
  - Vomiting [Recovering/Resolving]
  - Candida test positive [Recovered/Resolved]

NARRATIVE: CASE EVENT DATE: 20220311
